FAERS Safety Report 8454147-3 (Version None)
Quarter: 2012Q2

REPORT INFORMATION
  Report Type: 
  Country: None (occurrence: None)
  Receive Date: 20120620
  Receipt Date: 20120104
  Transmission Date: 20120825
  Serious: Yes (Other)
  Sender: FDA-Public Use
  Company Number: US-ABBOTT-11P-163-0885039-00

PATIENT
  Age: 81 Year
  Sex: Male

DRUGS (3)
  1. HUMIRA [Suspect]
     Indication: RHEUMATOID ARTHRITIS
     Dates: start: 20110701
  2. UNKNOWN PAIN MEDICATION [Concomitant]
     Indication: PAIN
  3. UNNAMED MEDICATION [Concomitant]
     Indication: PAIN
     Dates: start: 20110101

REACTIONS (2)
  - OSTEOPOROSIS [None]
  - OSTEOPOROTIC FRACTURE [None]
